FAERS Safety Report 4910920-7 (Version None)
Quarter: 2006Q1

REPORT INFORMATION
  Report Type: 
  Country: None (occurrence: None)
  Receive Date: 20060214
  Receipt Date: 20060126
  Transmission Date: 20060701
  Serious: Yes (Hospitalization)
  Sender: FDA-Public Use
  Company Number: US-ROCHE-434043

PATIENT
  Age: 54 Year
  Sex: Male
  Weight: 106.6 kg

DRUGS (7)
  1. PEGASYS [Suspect]
     Indication: HEPATITIS C
     Route: 058
     Dates: start: 20050619, end: 20051016
  2. RIBASPHERE [Suspect]
     Indication: HEPATITIS C
     Route: 048
     Dates: start: 20050619, end: 20051016
  3. CITALOPRAM HYDROBROMIDE [Concomitant]
     Route: 048
  4. GABAPENTIN [Concomitant]
     Route: 048
  5. HYDROCHLOROTHIAZIDE [Concomitant]
     Route: 048
  6. METHADONE HCL [Concomitant]
     Route: 048
  7. VIAGRA [Concomitant]
     Route: 048

REACTIONS (10)
  - ABDOMINAL PAIN [None]
  - ANXIETY [None]
  - CHILLS [None]
  - GINGIVAL ABSCESS [None]
  - GINGIVAL INFECTION [None]
  - HYPERHIDROSIS [None]
  - NEUTROPHIL COUNT DECREASED [None]
  - PYREXIA [None]
  - TOOTH LOSS [None]
  - WHITE BLOOD CELL COUNT DECREASED [None]
